FAERS Safety Report 8549907-4 (Version None)
Quarter: 2012Q3

REPORT INFORMATION
  Report Type: 
  Country: None (occurrence: None)
  Receive Date: 20120730
  Receipt Date: 20120419
  Transmission Date: 20120928
  Serious: No
  Sender: FDA-Public Use
  Company Number: US-GLAXOSMITHKLINE-A0975230A

PATIENT
  Age: 54 Year
  Sex: Female
  Weight: 52.3 kg

DRUGS (5)
  1. IMITREX [Suspect]
     Indication: MIGRAINE
     Dosage: 50MG UNKNOWN
     Route: 065
     Dates: start: 20000101
  2. CRESTOR [Concomitant]
     Indication: BLOOD CHOLESTEROL INCREASED
     Dosage: 5MG PER DAY
     Route: 065
  3. NARATRIPTAN [Suspect]
     Indication: MIGRAINE
     Route: 065
     Dates: start: 20000101
  4. UNSPECIFIED MEDICATION [Concomitant]
     Indication: GLAUCOMA
     Route: 065
  5. LEVOTHYROXINE SODIUM [Concomitant]
     Indication: THYROID DISORDER
     Dosage: 5MCG PER DAY
     Route: 065

REACTIONS (1)
  - DRUG INEFFECTIVE [None]
